FAERS Safety Report 5765728-X (Version None)
Quarter: 2008Q2

REPORT INFORMATION
  Report Type: 
  Country: None (occurrence: None)
  Receive Date: 20080611
  Receipt Date: 20080530
  Transmission Date: 20081010
  Serious: Yes (Other)
  Sender: FDA-Public Use
  Company Number: PHBS2007BR12779

PATIENT
  Age: 31 Year
  Sex: Female
  Weight: 50 kg

DRUGS (2)
  1. CATAFLAM [Suspect]
     Indication: PHARYNGOLARYNGEAL PAIN
     Dosage: 100 MG, Q8H
     Route: 048
  2. CONTRACEPTIVES NOS [Concomitant]

REACTIONS (5)
  - CAESAREAN SECTION [None]
  - COMPLICATION OF DELIVERY [None]
  - DRUG EXPOSURE DURING PREGNANCY [None]
  - MECONIUM STAIN [None]
  - NORMAL NEWBORN [None]
